FAERS Safety Report 6031878-6 (Version None)
Quarter: 2009Q1

REPORT INFORMATION
  Report Type: 
  Country: None (occurrence: None)
  Receive Date: 20090108
  Receipt Date: 20081230
  Transmission Date: 20090719
  Serious: Yes (Death, Hospitalization)
  Sender: FDA-Public Use
  Company Number: CH-ROCHE-593019

PATIENT
  Sex: Male
  Weight: 62 kg

DRUGS (11)
  1. METHOXY POLYETHYLENE GLYCOL-EPOETIN BETA [Suspect]
     Route: 042
     Dates: start: 20080508
  2. AMLODIPINE [Concomitant]
     Dates: start: 20070619, end: 20081014
  3. ACETYLSALICYLIC ACID [Concomitant]
     Dates: start: 20061110, end: 20081014
  4. CALCIUMACETAT [Concomitant]
     Dates: start: 20080912, end: 20081014
  5. GLICLAZID [Concomitant]
     Dosage: DRUG NAME REPORTED AS ^GLICLACID^.
     Dates: start: 20061110, end: 20081014
  6. TORSEMIDE [Concomitant]
     Dates: start: 20070619, end: 20081014
  7. IODOPOVIDONUM [Concomitant]
     Dosage: DRUG NAME REPORTED AS ^POVIDONUM^.
     Dates: start: 20070828, end: 20081014
  8. ATORVASTATIN CALCIUM [Concomitant]
     Dates: start: 20070829, end: 20081014
  9. CHOLECALCIFEROL [Concomitant]
     Dates: start: 20080912, end: 20081014
  10. CALCITRIOL [Concomitant]
     Dates: start: 20080912, end: 20081014
  11. MORPHINE [Concomitant]
     Dosage: DRUG REPORTED AS: MORPHIN
     Dates: start: 20081014, end: 20081021

REACTIONS (2)
  - COLITIS ISCHAEMIC [None]
  - GASTROINTESTINAL HAEMORRHAGE [None]
